FAERS Safety Report 19610183 (Version 1)
Quarter: 2021Q3

REPORT INFORMATION
  Report Type: Spontaneous
  Country: GB (occurrence: GB)
  Receive Date: 20210726
  Receipt Date: 20210726
  Transmission Date: 20211014
  Serious: Yes (Hospitalization)
  Sender: FDA-Public Use
  Company Number: GB-MYLANLABS-2021M1045403

PATIENT
  Age: 80 Year

DRUGS (5)
  1. SIMVASTATIN. [Concomitant]
     Active Substance: SIMVASTATIN
     Dosage: 20MG TABLETS ONE ON
  2. AMLODIPINE [Concomitant]
     Active Substance: AMLODIPINE BESYLATE
     Dosage: 5MG TABLETS ONE OD
  3. BISOPROLOL [Concomitant]
     Active Substance: BISOPROLOL
     Dosage: 2.5MG TABLETS ONE OD
  4. RAMIPRIL. [Concomitant]
     Active Substance: RAMIPRIL
     Dosage: 2.5MG CAPSULES ONE OD
  5. APIXABAN [Suspect]
     Active Substance: APIXABAN
     Indication: PRODUCT USED FOR UNKNOWN INDICATION
     Dosage: 2.5MG BD
     Route: 048

REACTIONS (2)
  - Pyelonephritis [Unknown]
  - Urinary tract obstruction [Unknown]
